FAERS Safety Report 8386288-3 (Version None)
Quarter: 2012Q2

REPORT INFORMATION
  Report Type: 
  Country: None (occurrence: None)
  Receive Date: 20120525
  Receipt Date: 20120514
  Transmission Date: 20120825
  Serious: No
  Sender: FDA-Public Use
  Company Number: US-B.I. PHARMACEUTICALS,INC./RIDGEFIELD-2012-BP-06495BP

PATIENT
  Sex: Male
  Weight: 66.22 kg

DRUGS (17)
  1. MATZIN LA [Concomitant]
  2. VITAMIN-MINERAL COMPOUND TAB [Concomitant]
  3. LASIX [Concomitant]
     Dosage: 20 MG
     Dates: start: 20120409, end: 20120416
  4. FENOFIBRATE [Concomitant]
  5. FISHOIL [Concomitant]
  6. SINGULAIR [Concomitant]
     Dosage: 10 MG
  7. ASPIRIN [Concomitant]
  8. VIT D3 [Concomitant]
  9. MTV [Concomitant]
  10. ACETYLCYSTEINE [Concomitant]
  11. CO Q10 [Concomitant]
  12. VITAMIN B COMPLEX CAP [Concomitant]
  13. FLOMAX [Concomitant]
  14. HYDROXYCHLOR [Concomitant]
     Dosage: 200 MG
  15. PRADAXA [Suspect]
     Dosage: 150 MG
     Dates: start: 20110210, end: 20110405
  16. SIMVASTATIN [Concomitant]
     Dosage: 40 MG
     Dates: start: 20100603
  17. FINASTERIDE [Concomitant]

REACTIONS (3)
  - RENAL DISORDER [None]
  - HAEMATURIA [None]
  - HAEMORRHAGE [None]
